FAERS Safety Report 10498043 (Version 1)
Quarter: 2014Q4

REPORT INFORMATION
  Report Type: Spontaneous
  Country: US (occurrence: None)
  Receive Date: 20141003
  Receipt Date: 20141003
  Transmission Date: 20150528
  Serious: Yes (Life-Threatening, Hospitalization)
  Sender: FDA-Public Use
  Company Number: None

PATIENT
  Age: 80 Year
  Sex: Male
  Weight: 93 kg

DRUGS (1)
  1. VITAMIN K1 [Suspect]
     Active Substance: PHYTONADIONE
     Indication: INTERNATIONAL NORMALISED RATIO INCREASED
     Route: 042
     Dates: start: 20141001, end: 20141001

REACTIONS (6)
  - Pulse absent [None]
  - Hypokalaemia [None]
  - Fall [None]
  - Unresponsive to stimuli [None]
  - Hypoglycaemia [None]
  - Respiratory arrest [None]

NARRATIVE: CASE EVENT DATE: 20141001
